FAERS Safety Report 11597931 (Version 1)
Quarter: 2015Q4

REPORT INFORMATION
  Report Type: Spontaneous
  Country: US (occurrence: US)
  Receive Date: 20151006
  Receipt Date: 20151006
  Transmission Date: 20160304
  Serious: No
  Sender: FDA-Public Use
  Company Number: US-ROCHE-1350367

PATIENT
  Sex: Male

DRUGS (2)
  1. ERIVEDGE [Suspect]
     Active Substance: VISMODEGIB
     Dosage: DOSE NOT REPORTED
     Route: 048
  2. ERIVEDGE [Suspect]
     Active Substance: VISMODEGIB
     Indication: SKIN CANCER
     Route: 048
     Dates: start: 20130907

REACTIONS (5)
  - Decreased appetite [Unknown]
  - Dysgeusia [Not Recovered/Not Resolved]
  - Malaise [Unknown]
  - Sluggishness [Unknown]
  - Weight decreased [Unknown]
